FAERS Safety Report 6226990-2 (Version None)
Quarter: 2009Q2

REPORT INFORMATION
  Report Type: 
  Country: None (occurrence: None)
  Receive Date: 20090612
  Receipt Date: 20090520
  Transmission Date: 20091009
  Serious: No
  Sender: FDA-Public Use
  Company Number: US-ABBOTT-09P-163-0575652-00

PATIENT
  Sex: Female
  Weight: 88.984 kg

DRUGS (3)
  1. HUMIRA [Suspect]
     Indication: PSORIASIS
     Route: 058
     Dates: start: 20090501, end: 20090518
  2. HUMIRA [Suspect]
     Indication: PSORIATIC ARTHROPATHY
  3. ZYRTEC [Concomitant]
     Indication: HYPERSENSITIVITY

REACTIONS (9)
  - ASTHENIA [None]
  - CHOKING [None]
  - INJECTION SITE IRRITATION [None]
  - NASAL CONGESTION [None]
  - OROPHARYNGEAL PAIN [None]
  - PAIN [None]
  - RHINORRHOEA [None]
  - SCAB [None]
  - SINUSITIS [None]
